FAERS Safety Report 8990676 (Version 1)
Quarter: 2012Q4

REPORT INFORMATION
  Report Type: Spontaneous
  Country: US (occurrence: None)
  Receive Date: 20121226
  Receipt Date: 20121226
  Transmission Date: 20130627
  Serious: Yes (Other)
  Sender: FDA-Public Use
  Company Number: None

PATIENT
  Age: 14 Year
  Sex: Male
  Weight: 67.59 kg

DRUGS (1)
  1. OLANZAPINE [Suspect]
     Indication: PSYCHOSIS

REACTIONS (4)
  - Psychotic disorder [None]
  - Disease recurrence [None]
  - Drug ineffective [None]
  - Product quality issue [None]
